FAERS Safety Report 17495544 (Version 26)
Quarter: 2025Q4

REPORT INFORMATION
  Report Type: Spontaneous
  Country: US (occurrence: US)
  Receive Date: 20200304
  Receipt Date: 20251211
  Transmission Date: 20260117
  Serious: Yes (Other)
  Sender: PFIZER
  Company Number: US-PFIZER INC-2019556259

PATIENT
  Age: 74 Year
  Sex: Male
  Weight: 72 kg

DRUGS (24)
  1. TOVIAZ [Suspect]
     Active Substance: FESOTERODINE FUMARATE
     Indication: Incontinence
     Dosage: 4 MG, 2X/DAY
  2. TOVIAZ [Suspect]
     Active Substance: FESOTERODINE FUMARATE
     Indication: Urinary incontinence
     Dosage: 4 MG, 2X/DAY (1 TABLET AT NOON AND 1 TABLET AT MIDNIGHT BY MOUTH)
     Route: 048
     Dates: start: 202001
  3. TOVIAZ [Suspect]
     Active Substance: FESOTERODINE FUMARATE
     Indication: Hypertonic bladder
     Dosage: 4 MG, 2X/DAY
     Route: 048
  4. TOVIAZ [Suspect]
     Active Substance: FESOTERODINE FUMARATE
     Dosage: 4 MG, 2X/DAY
     Route: 048
  5. TOVIAZ [Suspect]
     Active Substance: FESOTERODINE FUMARATE
     Dosage: 4 MG, 3X/DAY (BLUE PILL)
  6. TOVIAZ [Suspect]
     Active Substance: FESOTERODINE FUMARATE
     Dosage: UNK
  7. TOVIAZ [Suspect]
     Active Substance: FESOTERODINE FUMARATE
     Dosage: 4 MG, 3X/DAY(3 TIMES A DAY)
  8. OXYBUTYNIN [Concomitant]
     Active Substance: OXYBUTYNIN
     Indication: Incontinence
     Dosage: 10 MG, 1X/DAY
     Dates: start: 2017, end: 202002
  9. ALFUZOSIN [Concomitant]
     Active Substance: ALFUZOSIN
     Indication: Incontinence
     Dosage: 10 MG, 1X/DAY
     Dates: start: 2019, end: 202002
  10. TADALAFIL [Concomitant]
     Active Substance: TADALAFIL
     Indication: Incontinence
     Dosage: 5 MG, 1X/DAY
     Dates: start: 2019, end: 202002
  11. METHYLPHENIDATE [Concomitant]
     Active Substance: METHYLPHENIDATE
     Indication: Narcolepsy
     Dosage: 1.5 MG, 2X/DAY
  12. METHYLPHENIDATE [Concomitant]
     Active Substance: METHYLPHENIDATE
     Dosage: 30 MG, 1X/DAY
  13. GABAPENTIN [Concomitant]
     Active Substance: GABAPENTIN
     Indication: Neuropathy peripheral
     Dosage: 300 MG, 1X/DAY
  14. GABAPENTIN [Concomitant]
     Active Substance: GABAPENTIN
     Dosage: 900 MG, 2X/DAY
  15. FINASTERIDE [Concomitant]
     Active Substance: FINASTERIDE
     Indication: Alopecia
     Dosage: 5 MG, 1X/DAY
  16. FINASTERIDE [Concomitant]
     Active Substance: FINASTERIDE
     Indication: Prostatic disorder
  17. FINASTERIDE [Concomitant]
     Active Substance: FINASTERIDE
     Indication: Incontinence
  18. LOSARTAN [Concomitant]
     Active Substance: LOSARTAN
     Indication: Hypertension
     Dosage: 50 MG, 1X/DAY
  19. FAMOTIDINE [Concomitant]
     Active Substance: FAMOTIDINE
     Indication: Gastrooesophageal reflux disease
     Dosage: 20MG TABLETS, 2 TABLETS AT NIGHT
  20. OMEPRAZOLE [Concomitant]
     Active Substance: OMEPRAZOLE
     Indication: Gastrooesophageal reflux disease
     Dosage: 20 MG CAPSULE, 1 TWICE DAILY BEFORE MEAL
  21. OMEPRAZOLE [Concomitant]
     Active Substance: OMEPRAZOLE
     Dosage: 40 MG, 2X/DAY
  22. CIALIS [Concomitant]
     Active Substance: TADALAFIL
     Indication: Incontinence
     Dosage: 5 MG
  23. XARELTO [Concomitant]
     Active Substance: RIVAROXABAN
     Indication: Thrombosis
     Dosage: UNK
  24. ATORVASTATIN [Concomitant]
     Active Substance: ATORVASTATIN
     Dosage: 40 MG, 1X/DAY

REACTIONS (20)
  - Neoplasm malignant [Unknown]
  - Urethral haemorrhage [Unknown]
  - Thrombosis [Unknown]
  - Drug ineffective [Unknown]
  - Off label use [Unknown]
  - Intentional overdose [Unknown]
  - Product prescribing error [Unknown]
  - Transcription medication error [Unknown]
  - Bladder disorder [Unknown]
  - Fatigue [Unknown]
  - Psychological factor affecting medical condition [Unknown]
  - Quality of life decreased [Unknown]
  - Somnolence [Unknown]
  - Urinary incontinence [Unknown]
  - Benign prostatic hyperplasia [Unknown]
  - Haematuria [Unknown]
  - Prostatomegaly [Unknown]
  - Gait disturbance [Unknown]
  - COVID-19 [Unknown]
  - Pain in extremity [Unknown]

NARRATIVE: CASE EVENT DATE: 20200101
